FAERS Safety Report 4682568-3 (Version None)
Quarter: 2005Q2

REPORT INFORMATION
  Report Type: 
  Country: None (occurrence: None)
  Receive Date: 20050606
  Receipt Date: 20050523
  Transmission Date: 20051028
  Serious: Yes (Hospitalization)
  Sender: FDA-Public Use
  Company Number: JP-JNJFOC-20050506227

PATIENT
  Age: 53 Year
  Sex: Male

DRUGS (6)
  1. OFLOCET [Suspect]
     Indication: DRUG USE FOR UNKNOWN INDICATION
     Route: 042
     Dates: start: 20041118, end: 20041206
  2. LASILIX [Suspect]
     Indication: DRUG USE FOR UNKNOWN INDICATION
     Dosage: 250MG/25ML
     Route: 042
     Dates: end: 20041208
  3. FOSFOCINE [Suspect]
     Indication: DRUG USE FOR UNKNOWN INDICATION
     Route: 042
     Dates: start: 20041104, end: 20041130
  4. AZACTAM [Suspect]
     Indication: DRUG USE FOR UNKNOWN INDICATION
     Route: 042
     Dates: start: 20041104, end: 20041130
  5. ARANESP [Concomitant]
     Route: 058
  6. OMEPRAZOLE [Concomitant]

REACTIONS (1)
  - POLYNEUROPATHY [None]
